FAERS Safety Report 6688139-1 (Version None)
Quarter: 2010Q2

REPORT INFORMATION
  Report Type: 
  Country: None (occurrence: None)
  Receive Date: 20100420
  Receipt Date: 20100408
  Transmission Date: 20101027
  Serious: Yes (Other)
  Sender: FDA-Public Use
  Company Number: US-PFIZER INC-2010028317

PATIENT
  Sex: Female
  Weight: 61.234 kg

DRUGS (21)
  1. ARTHROTEC [Suspect]
     Indication: ARTHRITIS
     Dosage: FREQUENCY: 2X/DAY,
     Route: 048
     Dates: start: 20091214, end: 20100301
  2. WELLBUTRIN XL [Concomitant]
     Indication: MIGRAINE PROPHYLAXIS
     Dosage: 300 MG, 1X/DAY
     Route: 048
  3. DETROL LA [Concomitant]
     Dosage: 4 MG, 1X/DAY
     Route: 048
  4. DIOVANE [Concomitant]
     Dosage: UNK
  5. CLARINEX [Concomitant]
     Dosage: 5 MG, 1X/DAY
     Route: 048
  6. TOPAMAX [Concomitant]
     Indication: MIGRAINE PROPHYLAXIS
     Dosage: 200 MG, 1 EVERY MORNING AND 2 EVERY NIGHT
  7. LIPITOR [Concomitant]
     Dosage: 10 MG, 1X/DAY
     Route: 048
  8. PROTONIX [Concomitant]
     Indication: PROPHYLAXIS
     Dosage: 40 MG, 1X/DAY
     Route: 048
  9. CLIMARA [Concomitant]
     Dosage: UNK
     Route: 062
  10. ALEVE (CAPLET) [Concomitant]
     Indication: MIGRAINE
     Dosage: FREQUENCY: AS NEEDED,
  11. LEVOXYL [Concomitant]
     Dosage: 75 UG, 1X/DAY
     Route: 048
  12. D.H.E. 45 [Concomitant]
     Dosage: FREQUENCY: AS NEEDED,
  13. FISH OIL [Concomitant]
     Dosage: UNK
  14. VITAMIN C [Concomitant]
     Dosage: UNK
  15. VITAMIN B-12 [Concomitant]
     Dosage: UNK
  16. LUTEIN [Concomitant]
     Dosage: 40 MG, 1X/DAY
  17. TRAZODONE HYDROCHLORIDE [Concomitant]
     Dosage: 25 MG, 1X/DAY
     Route: 048
  18. ACETYLSALICYLIC ACID [Concomitant]
     Route: 048
  19. CENTRUM SILVER [Concomitant]
     Dosage: 1 DF, 1X/DAY
     Route: 048
  20. FLONASE [Concomitant]
     Dosage: 2 SPRAY, 1X/DAY
     Route: 045
  21. VOLTAREN [Concomitant]
     Dosage: 75 MG, 2X/DAY
     Route: 048

REACTIONS (8)
  - ABDOMINAL PAIN UPPER [None]
  - ARTHRALGIA [None]
  - BACK PAIN [None]
  - BLOOD PRESSURE ABNORMAL [None]
  - BLOOD URINE PRESENT [None]
  - NEPHROLITHIASIS [None]
  - PRODUCT COUNTERFEIT [None]
  - PRODUCT QUALITY ISSUE [None]
